FAERS Safety Report 13110301 (Version 1)
Quarter: 2017Q1

REPORT INFORMATION
  Report Type: Spontaneous
  Country: US (occurrence: US)
  Receive Date: 20170112
  Receipt Date: 20170112
  Transmission Date: 20170428
  Serious: Yes (Death)
  Sender: FDA-Public Use
  Company Number: US-ROCHE-GNE302829

PATIENT
  Sex: Male

DRUGS (2)
  1. ACTIVASE [Suspect]
     Active Substance: ALTEPLASE
     Indication: ARTERIAL THROMBOSIS
     Dosage: 2 MG, UNK
     Route: 040
     Dates: start: 20100607
  2. ACTIVASE [Suspect]
     Active Substance: ALTEPLASE
     Dosage: 0.1 MG/KG, Q1H
     Route: 042
     Dates: start: 20100607

REACTIONS (1)
  - Haematoma [Fatal]

NARRATIVE: CASE EVENT DATE: 20100607
